FAERS Safety Report 8864402 (Version 1)
Quarter: 2012Q4

REPORT INFORMATION
  Report Type: 
  Country: US (occurrence: US)
  Receive Date: 20121024
  Receipt Date: 20121024
  Transmission Date: 20130627
  Serious: No
  Sender: FDA-Public Use
  Company Number: US-AMGEN-USASP2011067366

PATIENT
  Sex: Male
  Weight: 92.97 kg

DRUGS (10)
  1. ENBREL [Suspect]
     Indication: PSORIATIC ARTHROPATHY
     Dosage: 50 mg, qwk
     Route: 058
     Dates: start: 20091014
  2. AMLODIPINE [Concomitant]
     Dosage: UNK
  3. DESONIDE [Concomitant]
     Dosage: UNK
  4. FISH OIL [Concomitant]
  5. LANSOPRAZOLE [Concomitant]
  6. LOSARTAN POTASSIUM [Concomitant]
     Dosage: UNK
  7. MULTIVITAMIN                       /00097801/ [Concomitant]
     Dosage: UNK
  8. PLAQUENIL                          /00072602/ [Concomitant]
     Dosage: UNK
  9. SIMVASTATIN [Concomitant]
     Dosage: UNK
  10. TACLONEX [Concomitant]
     Dosage: UNK

REACTIONS (1)
  - Ear infection [Unknown]
